FAERS Safety Report 17036168 (Version 2)
Quarter: 2019Q4

REPORT INFORMATION
  Report Type: Spontaneous
  Country: US (occurrence: US)
  Receive Date: 20191115
  Receipt Date: 20191220
  Transmission Date: 20200122
  Serious: No
  Sender: FDA-Public Use
  Company Number: US-009507513-1911USA005446

PATIENT
  Age: 54 Year
  Sex: Male

DRUGS (1)
  1. ZEPATIER [Suspect]
     Active Substance: ELBASVIR\GRAZOPREVIR
     Dosage: 50-100 MG, DAILY
     Route: 048
     Dates: start: 201705, end: 201707

REACTIONS (4)
  - Abdominal pain upper [Unknown]
  - Weight decreased [Unknown]
  - Feeling hot [Unknown]
  - Weight increased [Unknown]

NARRATIVE: CASE EVENT DATE: 2017
